FAERS Safety Report 8660331 (Version 6)
Quarter: 2014Q2

REPORT INFORMATION
  Report Type: Report from Study
  Country: US (occurrence: US)
  Receive Date: 20120711
  Receipt Date: 20140618
  Transmission Date: 20141212
  Serious: Yes (Hospitalization, Other)
  Sender: FDA-Public Use
  Company Number: US-BAYER-2012-077105

PATIENT
  Age: 54 Year
  Sex: Female
  Weight: 46.71 kg

DRUGS (13)
  1. ALEVE [Suspect]
     Indication: ANALGESIC THERAPY
     Dosage: 220 MG, BID
     Route: 048
     Dates: start: 20120612, end: 20120613
  2. DOXYCYCLINE [Suspect]
     Indication: NON-SMALL CELL LUNG CANCER
     Dosage: 100 MG, BID
     Route: 048
     Dates: start: 20120529, end: 20120620
  3. DACOMITINIB [Suspect]
     Indication: NON-SMALL CELL LUNG CANCER
     Dosage: 45 MG, COHORTS I AND II DAILY CONTINOUS
     Dates: start: 20120529, end: 20120618
  4. DACOMITINIB [Suspect]
     Indication: NON-SMALL CELL LUNG CANCER
     Dosage: 45 MG, COHORTS I AND II DAILY CONTINOUS
     Dates: start: 20120623
  5. MS CONTIN [Concomitant]
     Indication: PAIN
     Dosage: 15 MG, BID
     Route: 048
     Dates: start: 20120612, end: 20120612
  6. MOTRIN [Concomitant]
     Indication: MUSCULOSKELETAL PAIN
     Dosage: UNK
     Dates: start: 201006, end: 20120611
  7. PAMIDRONATE [Concomitant]
     Indication: METASTASES TO BONE
     Dosage: UNK
     Dates: start: 20110225
  8. FOLIC ACID [Concomitant]
     Indication: CHEMOTHERAPY CYTOKINE PROPHYLAXIS
     Dosage: UNK
     Dates: start: 20111201
  9. THERAGRAN-M [Concomitant]
     Indication: ROUTINE HEALTH MAINTENANCE
     Dosage: UNK
     Dates: start: 19880101
  10. B12 [Concomitant]
     Indication: ROUTINE HEALTH MAINTENANCE
     Dosage: UNK
     Dates: start: 19880101
  11. VITAMIN D [Concomitant]
     Indication: ROUTINE HEALTH MAINTENANCE
     Dosage: UNK
     Dates: start: 19880101
  12. VITAMIN E [Concomitant]
     Indication: ROUTINE HEALTH MAINTENANCE
     Dosage: UNK
     Dates: start: 19880101
  13. VITAMIN C [Concomitant]
     Indication: ROUTINE HEALTH MAINTENANCE
     Dosage: UNK
     Dates: start: 19880101

REACTIONS (6)
  - Dehydration [Recovered/Resolved]
  - Renal failure acute [Recovering/Resolving]
  - Nausea [Recovered/Resolved]
  - Diarrhoea [Recovered/Resolved]
  - Vomiting [Recovered/Resolved]
  - Malaise [None]
